FAERS Safety Report 4483346-0 (Version None)
Quarter: 2004Q4

REPORT INFORMATION
  Report Type: 
  Country: None (occurrence: None)
  Receive Date: 20041020
  Receipt Date: 20041001
  Transmission Date: 20050328
  Serious: Yes (Other)
  Sender: FDA-Public Use
  Company Number: USA030433833

PATIENT
  Age: 73 Year
  Sex: Female

DRUGS (1)
  1. FORTEO [Suspect]
     Indication: OSTEOPOROSIS
     Dates: start: 20020101

REACTIONS (9)
  - BRONCHITIS [None]
  - CERVICAL VERTEBRAL FRACTURE [None]
  - DYSPEPSIA [None]
  - FALL [None]
  - HEART RATE INCREASED [None]
  - HOT FLUSH [None]
  - PHARMACEUTICAL PRODUCT COMPLAINT [None]
  - TREATMENT NONCOMPLIANCE [None]
  - URINE CALCIUM INCREASED [None]
